FAERS Safety Report 11691591 (Version 1)
Quarter: 2015Q4

REPORT INFORMATION
  Report Type: Spontaneous
  Country: US (occurrence: US)
  Receive Date: 20151102
  Receipt Date: 20151102
  Transmission Date: 20160304
  Serious: No
  Sender: FDA-Public Use
  Company Number: US-BAXALTA-2015BLT002507

PATIENT
  Age: 58 Year
  Sex: Male

DRUGS (1)
  1. HYQVIA [Suspect]
     Active Substance: HUMAN IMMUNOGLOBULIN G\HYALURONIDASE RECOMBINANT HUMAN
     Indication: IMMUNODEFICIENCY COMMON VARIABLE
     Dosage: 35 G, 1X A MONTH
     Dates: start: 201501

REACTIONS (2)
  - Platelet count decreased [Unknown]
  - Polycythaemia [Unknown]

NARRATIVE: CASE EVENT DATE: 20151015
